FAERS Safety Report 16480071 (Version 2)
Quarter: 2019Q2

REPORT INFORMATION
  Report Type: Spontaneous
  Country: US (occurrence: US)
  Receive Date: 20190626
  Receipt Date: 20190628
  Transmission Date: 20190711
  Serious: No
  Sender: FDA-Public Use
  Company Number: US-LEXICON PHARMACEUTICALS, INC-19-1606-00632

PATIENT
  Age: 78 Year
  Sex: Female

DRUGS (19)
  1. TELOTRISTAT ETHYL [Suspect]
     Active Substance: TELOTRISTAT ETHYL
     Indication: CARCINOID SYNDROME
     Route: 048
     Dates: start: 20190523, end: 20190525
  2. BUPROPION. [Concomitant]
     Active Substance: BUPROPION
  3. SPIRONOLACTONE. [Concomitant]
     Active Substance: SPIRONOLACTONE
  4. FEXOFENADINE HCL [Concomitant]
     Active Substance: FEXOFENADINE HYDROCHLORIDE
  5. LEVOTHYROXIN [Concomitant]
     Active Substance: LEVOTHYROXINE
  6. MULTIVITAMIN [Concomitant]
     Active Substance: VITAMINS
  7. DIPHENOXYLATE [Concomitant]
     Active Substance: DIPHENOXYLATE
  8. ALIGN [Concomitant]
     Active Substance: BIFIDOBACTERIUM LONGUM SUBSP. INFANTIS
  9. RISPERDAL [Concomitant]
     Active Substance: RISPERIDONE
  10. TELOTRISTAT ETHYL [Suspect]
     Active Substance: TELOTRISTAT ETHYL
     Route: 048
     Dates: start: 20190528
  11. OCTREOTIDE. [Concomitant]
     Active Substance: OCTREOTIDE
  12. OLANZAPINE. [Concomitant]
     Active Substance: OLANZAPINE
  13. SIMVASTATIN. [Concomitant]
     Active Substance: SIMVASTATIN
  14. PROTONIX [Concomitant]
     Active Substance: PANTOPRAZOLE SODIUM
  15. TORSEMIDE. [Concomitant]
     Active Substance: TORSEMIDE
  16. COREG [Concomitant]
     Active Substance: CARVEDILOL
  17. FELODIPINEEXTENDED-RELEASE TABLETS [Concomitant]
     Active Substance: FELODIPINE
  18. LAMOTRIGINE. [Concomitant]
     Active Substance: LAMOTRIGINE
  19. WARFARIN [Concomitant]
     Active Substance: WARFARIN

REACTIONS (1)
  - Fatigue [Recovered/Resolved]

NARRATIVE: CASE EVENT DATE: 20190525
